FAERS Safety Report 8873938 (Version 1)
Quarter: 2012Q4

REPORT INFORMATION
  Report Type: 
  Country: US (occurrence: US)
  Receive Date: 20121023
  Receipt Date: 20121023
  Transmission Date: 20130627
  Serious: Yes (Disabling)
  Sender: FDA-Public Use
  Company Number: US-009507513-1210USA009730

PATIENT
  Age: 35 Year
  Sex: Female
  Weight: 78.46 kg

DRUGS (1)
  1. IMPLANON [Suspect]
     Indication: CONTRACEPTION
     Dosage: Every 3 years
     Route: 059
     Dates: start: 200910

REACTIONS (8)
  - Pain in extremity [Unknown]
  - Implant site pruritus [Unknown]
  - Oedema peripheral [Unknown]
  - Hypoaesthesia [Unknown]
  - Chest pain [Unknown]
  - Bowel movement irregularity [Unknown]
  - Amenorrhoea [Recovered/Resolved]
  - Menorrhagia [Unknown]
